FAERS Safety Report 11440597 (Version 1)
Quarter: 2015Q3

REPORT INFORMATION
  Report Type: Spontaneous
  Country: US (occurrence: US)
  Receive Date: 20150821
  Receipt Date: 20150821
  Transmission Date: 20151125
  Serious: Yes (Other)
  Sender: FDA-Public Use
  Company Number: US-ELI_LILLY_AND_COMPANY-US200707000104

PATIENT
  Sex: Female

DRUGS (8)
  1. PROZAC [Suspect]
     Active Substance: FLUOXETINE HYDROCHLORIDE
     Dosage: 60 MG, DAILY (1/D)
  2. TRANXENE T-TAB [Concomitant]
     Active Substance: CLORAZEPATE DIPOTASSIUM
  3. WELLBUTRIN [Concomitant]
     Active Substance: BUPROPION HYDROCHLORIDE
     Indication: DEPRESSION
     Dosage: 200 MG, DAILY (1/D)
     Route: 048
  4. ZYPREXA [Suspect]
     Active Substance: OLANZAPINE
  5. LAMICTAL [Concomitant]
     Active Substance: LAMOTRIGINE
     Indication: BIPOLAR II DISORDER
     Route: 048
  6. PROZAC [Suspect]
     Active Substance: FLUOXETINE HYDROCHLORIDE
     Indication: DEPRESSION
     Dosage: 20 MG, DAILY (1/D)
     Dates: start: 1980
  7. CYMBALTA [Suspect]
     Active Substance: DULOXETINE HYDROCHLORIDE
  8. PAXIL [Concomitant]
     Active Substance: PAROXETINE HYDROCHLORIDE
     Indication: DEPRESSION
     Route: 048

REACTIONS (24)
  - Apallic syndrome [Unknown]
  - Memory impairment [Unknown]
  - Anger [Unknown]
  - Loss of proprioception [Unknown]
  - Violence-related symptom [Unknown]
  - Self injurious behaviour [Unknown]
  - Fatigue [Unknown]
  - Morbid thoughts [Unknown]
  - Aggression [Unknown]
  - Depression [Unknown]
  - Pseudodementia [Unknown]
  - Abnormal dreams [Unknown]
  - Speech disorder [Unknown]
  - Abdominal discomfort [Unknown]
  - Nightmare [Unknown]
  - Drug ineffective [Unknown]
  - Suicidal ideation [Unknown]
  - Crying [Unknown]
  - Social avoidant behaviour [Unknown]
  - Hypersomnia [Unknown]
  - Toxicity to various agents [Unknown]
  - Scar [Unknown]
  - Agitation [Unknown]
  - Physical abuse [Unknown]
